FAERS Safety Report 14559126 (Version 7)
Quarter: 2021Q1

REPORT INFORMATION
  Report Type: Spontaneous
  Country: US (occurrence: US)
  Receive Date: 20180221
  Receipt Date: 20210309
  Transmission Date: 20210419
  Serious: Yes (Other)
  Sender: FDA-Public Use
  Company Number: US-PFIZER INC-2018070862

PATIENT
  Age: 86 Year
  Sex: Female
  Weight: 58.97 kg

DRUGS (10)
  1. XELJANZ [Suspect]
     Active Substance: TOFACITINIB CITRATE
     Indication: RHEUMATOID ARTHRITIS
     Dosage: 5 MG, 2X/DAY (ONE TABLET IN THE MORNING AND ONE IN THE EVENING)
     Route: 048
     Dates: start: 2015
  2. METOPROLOL. [Concomitant]
     Active Substance: METOPROLOL
     Indication: BLOOD PRESSURE ABNORMAL
     Dosage: UNK
     Dates: start: 2015
  3. XELJANZ [Suspect]
     Active Substance: TOFACITINIB CITRATE
     Dosage: 5 MG, UNK
     Route: 048
     Dates: end: 20180209
  4. ASPIRIN [ACETYLSALICYLIC ACID] [Concomitant]
     Active Substance: ASPIRIN
     Dosage: UNK
  5. XELJANZ [Suspect]
     Active Substance: TOFACITINIB CITRATE
     Dosage: 5 MG, 2X/DAY (AM AND PM)
     Route: 048
     Dates: start: 2016
  6. XELJANZ [Suspect]
     Active Substance: TOFACITINIB CITRATE
     Dosage: 5 MG, UNK
     Route: 048
     Dates: end: 20180601
  7. XELJANZ [Suspect]
     Active Substance: TOFACITINIB CITRATE
     Dosage: UNK
     Route: 048
  8. ADVIL [Concomitant]
     Active Substance: IBUPROFEN
     Dosage: UNK
  9. LISINOPRIL. [Concomitant]
     Active Substance: LISINOPRIL
     Indication: BLOOD PRESSURE ABNORMAL
     Dosage: UNK
     Dates: start: 2012
  10. SIMVASTATIN. [Concomitant]
     Active Substance: SIMVASTATIN
     Indication: BLOOD CHOLESTEROL ABNORMAL
     Dosage: UNK
     Dates: start: 2012

REACTIONS (9)
  - Respiratory tract infection [Recovering/Resolving]
  - Herpes zoster [Not Recovered/Not Resolved]
  - Dizziness [Unknown]
  - Peripheral swelling [Unknown]
  - Malaise [Unknown]
  - Neoplasm malignant [Unknown]
  - Intentional product misuse [Unknown]
  - Feeling abnormal [Unknown]
  - Influenza [Unknown]

NARRATIVE: CASE EVENT DATE: 20180208
